FAERS Safety Report 5892055-2 (Version None)
Quarter: 2008Q3

REPORT INFORMATION
  Report Type: 
  Country: None (occurrence: None)
  Receive Date: 20080922
  Receipt Date: 20080915
  Transmission Date: 20090109
  Serious: No
  Sender: FDA-Public Use
  Company Number: US-B.I. PHARMACEUTICALS,INC./RIDGEFIELD-2008-BP-14292BP

PATIENT
  Age: 46 Year
  Sex: Male

DRUGS (5)
  1. FLOMAX [Suspect]
     Indication: PROSTATOMEGALY
     Dosage: .4MG
     Route: 048
     Dates: start: 20080301, end: 20080301
  2. ATENOLOL [Concomitant]
     Indication: HYPERTENSION
  3. ALTACE [Concomitant]
  4. CHOLESTEROL MED [Concomitant]
  5. AMBIEN [Concomitant]
     Indication: SLEEP DISORDER

REACTIONS (4)
  - LOSS OF CONSCIOUSNESS [None]
  - MOUTH INJURY [None]
  - PERIORBITAL HAEMATOMA [None]
  - TOOTH INJURY [None]
